FAERS Safety Report 16234067 (Version 5)
Quarter: 2022Q2

REPORT INFORMATION
  Report Type: Spontaneous
  Country: US (occurrence: US)
  Receive Date: 20190424
  Receipt Date: 20220408
  Transmission Date: 20220720
  Serious: Yes (Disabling, Other)
  Sender: FDA-Public Use
  Company Number: US-PFIZER INC-2017013935

PATIENT
  Age: 53 Year
  Sex: Female
  Weight: 99.79 kg

DRUGS (11)
  1. BOSULIF [Suspect]
     Active Substance: BOSUTINIB MONOHYDRATE
     Indication: Chronic myeloid leukaemia
     Dosage: 200 MG, 1X/DAY (30 DAY SUPPLY, ONCE DAILY WITH FOOD)
     Route: 048
     Dates: start: 201405
  2. BOSULIF [Suspect]
     Active Substance: BOSUTINIB MONOHYDRATE
     Dosage: 200 MG, 1X/DAY (TWO 100 MG TABLETS BY MOUTH AT NIGHT)
     Route: 048
     Dates: start: 201710
  3. BOSULIF [Suspect]
     Active Substance: BOSUTINIB MONOHYDRATE
     Dosage: 200 MG, 1X/DAY (TWO 100 MG TABLETS AT NIGHT, 200MG TOTAL WITH MEALS)
     Route: 048
     Dates: start: 20200225
  4. BOSULIF [Suspect]
     Active Substance: BOSUTINIB MONOHYDRATE
     Dosage: 200 MG, 1X/DAY (100 MG 2 PILLS ONCE A DAY)
  5. QVAR [Concomitant]
     Active Substance: BECLOMETHASONE DIPROPIONATE
     Dosage: 1 DF, 2X/DAY (INHALE 1 PUFF AS INSTRUCTED TWICE DAILY)
  6. QVAR [Concomitant]
     Active Substance: BECLOMETHASONE DIPROPIONATE
     Dosage: 1 DF, AS NEEDED (INHALE 1 PUFF AS INSTRUCTED TWICE DAILY AS NEEDED)
  7. VITAMIN B12 [Concomitant]
     Active Substance: CYANOCOBALAMIN
     Dosage: 1000 UG, 1X/DAY (DISSOLVE 1 TABLET UNDER THE TONGUE ONCE DAILY)
     Route: 060
     Dates: start: 20190814
  8. IRON [FERROUS SULFATE] [Concomitant]
     Indication: Chronic myeloid leukaemia
     Dosage: 325 MG (1 TABLET BY MOUTH ONE TO TWO TIMES DAILY)
     Route: 048
     Dates: start: 20150911
  9. SYNTHROID [Concomitant]
     Active Substance: LEVOTHYROXINE SODIUM
     Indication: Hypothyroidism
     Dosage: 112 UG, DAILY
     Route: 048
  10. SYNTHROID [Concomitant]
     Active Substance: LEVOTHYROXINE SODIUM
     Dosage: 112 UG, 1X/DAY
     Route: 048
     Dates: start: 20200603
  11. MAGNESIUM OXIDE [Concomitant]
     Active Substance: MAGNESIUM OXIDE
     Dosage: 400 MG
     Route: 048

REACTIONS (6)
  - Loss of consciousness [Unknown]
  - Somnolence [Not Recovered/Not Resolved]
  - Feeling abnormal [Not Recovered/Not Resolved]
  - Jaw disorder [Not Recovered/Not Resolved]
  - Bone pain [Unknown]
  - Fatigue [Unknown]

NARRATIVE: CASE EVENT DATE: 20190201
